FAERS Safety Report 6294881-7 (Version None)
Quarter: 2009Q3

REPORT INFORMATION
  Report Type: 
  Country: None (occurrence: None)
  Receive Date: 20090731
  Receipt Date: 20090731
  Transmission Date: 20100115
  Serious: Yes (Other)
  Sender: FDA-Public Use
  Company Number: None

PATIENT
  Age: 67 Year
  Sex: Female
  Weight: 59.8748 kg

DRUGS (1)
  1. AVELOX [Suspect]
     Indication: RESPIRATORY DISORDER

REACTIONS (3)
  - ILLUSION [None]
  - MENTAL DISORDER [None]
  - THINKING ABNORMAL [None]
